FAERS Safety Report 22073081 (Version 1)
Quarter: 2023Q1

REPORT INFORMATION
  Report Type: Report from Study
  Country: CA (occurrence: CA)
  Receive Date: 20230308
  Receipt Date: 20230308
  Transmission Date: 20230418
  Serious: Yes (Other)
  Sender: FDA-Public Use
  Company Number: CA-JNJFOC-20230316780

PATIENT
  Age: 4 Decade
  Sex: Female
  Weight: 136.6 kg

DRUGS (2)
  1. REMICADE [Suspect]
     Active Substance: INFLIXIMAB
     Indication: Crohn^s disease
     Route: 042
     Dates: start: 20070925, end: 202211
  2. REMICADE [Suspect]
     Active Substance: INFLIXIMAB
     Dosage: NOW RELOAD REQUESTED AT 700 MG WEEK 0,2,6 EVERY 8 WEEK
     Route: 042

REACTIONS (2)
  - Pyoderma gangrenosum [Unknown]
  - Off label use [Unknown]

NARRATIVE: CASE EVENT DATE: 20220101
